FAERS Safety Report 10745085 (Version 1)
Quarter: 2015Q1

REPORT INFORMATION
  Report Type: Spontaneous
  Country: US (occurrence: None)
  Receive Date: 20150126
  Receipt Date: 20150126
  Transmission Date: 20150721
  Serious: No
  Sender: FDA-Public Use
  Company Number: None

PATIENT
  Age: 38 Year
  Sex: Female
  Weight: 66 kg

DRUGS (1)
  1. ENTYVIO [Suspect]
     Active Substance: VEDOLIZUMAB
     Indication: CROHN^S DISEASE
     Dosage: WKS 0, 2, 6 THE Q8W
     Route: 042
     Dates: start: 20150102, end: 20150102

REACTIONS (5)
  - Skin fissures [None]
  - Oedema [None]
  - Peripheral swelling [None]
  - Rash [None]
  - Blister [None]

NARRATIVE: CASE EVENT DATE: 20150123
